FAERS Safety Report 11545098 (Version 1)
Quarter: 2015Q3

REPORT INFORMATION
  Report Type: Report from Study
  Country: CN (occurrence: CN)
  Receive Date: 20150924
  Receipt Date: 20150924
  Transmission Date: 20151125
  Serious: Yes (Other)
  Sender: FDA-Public Use
  Company Number: CN-ROCHE-1633817

PATIENT

DRUGS (11)
  1. OXALIPLATIN. [Suspect]
     Active Substance: OXALIPLATIN
     Indication: COLORECTAL CANCER METASTATIC
     Dosage: OVER TWO HOURS
     Route: 042
  2. LEUCOVORIN. [Suspect]
     Active Substance: LEUCOVORIN
     Indication: COLORECTAL CANCER METASTATIC
     Route: 042
  3. LEUCOVORIN. [Suspect]
     Active Substance: LEUCOVORIN
     Dosage: OVER 2 HOURS
     Route: 042
  4. IRINOTECAN [Suspect]
     Active Substance: IRINOTECAN
     Indication: COLORECTAL CANCER METASTATIC
     Dosage: OVER 2 HOURS
     Route: 042
  5. GEMCITABINE [Suspect]
     Active Substance: GEMCITABINE\GEMCITABINE HYDROCHLORIDE
     Indication: COLORECTAL CANCER METASTATIC
     Route: 065
  6. BEVACIZUMAB [Suspect]
     Active Substance: BEVACIZUMAB
     Dosage: OVER 90 MINUTES EVERY 2 OR 3 WEEKS PRIOR TO THE ADMINISTRATION OF CHEMOTHERAPY.
     Route: 042
  7. CAPECITABINE. [Suspect]
     Active Substance: CAPECITABINE
     Indication: COLORECTAL CANCER METASTATIC
     Route: 065
  8. BEVACIZUMAB [Suspect]
     Active Substance: BEVACIZUMAB
     Indication: COLORECTAL CANCER METASTATIC
     Dosage: OVER 90 MINUTES EVERY 2 OR 3 WEEKS PRIOR TO THE ADMINISTRATION OF CHEMOTHERAPY.
     Route: 042
  9. 5-FU [Suspect]
     Active Substance: FLUOROURACIL
     Indication: COLORECTAL CANCER METASTATIC
     Route: 040
  10. 5-FU [Suspect]
     Active Substance: FLUOROURACIL
     Dosage: 46 HOURS OF CONTINUOUS
     Route: 042
  11. RALTITREXED [Suspect]
     Active Substance: RALTITREXED
     Indication: COLORECTAL CANCER METASTATIC
     Route: 065

REACTIONS (14)
  - Transaminases increased [Unknown]
  - Hepatotoxicity [Unknown]
  - Hypertension [Unknown]
  - Thrombocytopenia [Unknown]
  - Haemorrhage [Unknown]
  - Fatigue [Unknown]
  - Nausea [Unknown]
  - Proteinuria [Unknown]
  - Leukopenia [Unknown]
  - Mucosal inflammation [Unknown]
  - Anaemia [Unknown]
  - Neutropenia [Unknown]
  - Diarrhoea [Unknown]
  - Vomiting [Unknown]
